FAERS Safety Report 8373728-9 (Version None)
Quarter: 2012Q2

REPORT INFORMATION
  Report Type: 
  Country: None (occurrence: None)
  Receive Date: 20120517
  Receipt Date: 20120504
  Transmission Date: 20120825
  Serious: Yes (Hospitalization)
  Sender: FDA-Public Use
  Company Number: FK201201229

PATIENT
  Age: 50 Year
  Sex: Female

DRUGS (10)
  1. BISOPROLOL FUMARATE [Concomitant]
  2. ACETAMINOPHEN [Concomitant]
  3. AMILORIDE (AMILORIDE) [Concomitant]
  4. POTASSIUM CHLORIDE [Concomitant]
  5. ANTAZOLINE (ANAZOLINE) [Concomitant]
  6. CEFTRIAXON [Suspect]
     Indication: PRODUCT USED FOR UNKNOWN INDICATION
  7. CLEMASTINE FUMARATE [Concomitant]
  8. ENOXAPARIN SODIUM [Concomitant]
  9. HYDROCHLOROTHIAZIDE [Concomitant]
  10. INDAPAMIDE [Concomitant]

REACTIONS (2)
  - ERYTHRODERMIC PSORIASIS [None]
  - ERYTHEMA MULTIFORME [None]
